FAERS Safety Report 23473367 (Version 1)
Quarter: 2024Q1

REPORT INFORMATION
  Report Type: Spontaneous
  Country: US (occurrence: US)
  Receive Date: 20240203
  Receipt Date: 20240203
  Transmission Date: 20240409
  Serious: Yes (Other)
  Sender: FDA-Public Use
  Company Number: US-AUROBINDO-AUR-APL-2024-004023

PATIENT
  Age: 63 Year
  Sex: Male

DRUGS (5)
  1. METHYLPREDNISOLONE [Suspect]
     Active Substance: METHYLPREDNISOLONE
     Indication: Kounis syndrome
     Dosage: 125 MILLIGRAM
     Route: 042
  2. DIPHENHYDRAMINE [Suspect]
     Active Substance: DIPHENHYDRAMINE
     Indication: Kounis syndrome
     Dosage: 50 MILLIGRAM
     Route: 042
  3. FAMOTIDINE [Suspect]
     Active Substance: FAMOTIDINE
     Indication: Kounis syndrome
     Dosage: 20 MILLIGRAM
     Route: 042
  4. EPINEPHRINE [Suspect]
     Active Substance: EPINEPHRINE
     Indication: Kounis syndrome
     Dosage: 50 MICROGRAM
     Route: 042
  5. EPINEPHRINE [Suspect]
     Active Substance: EPINEPHRINE
     Indication: Hypotension

REACTIONS (1)
  - Drug ineffective [Unknown]
